FAERS Safety Report 14414227 (Version 1)
Quarter: 2018Q1

REPORT INFORMATION
  Report Type: Report from Study
  Country: None (occurrence: CA)
  Receive Date: 20180120
  Receipt Date: 20180120
  Transmission Date: 20180509
  Serious: Yes (Hospitalization, Other)
  Sender: FDA-Public Use
  Company Number: CA-ABBVIE-17K-028-2068379-00

PATIENT
  Sex: Male

DRUGS (1)
  1. HUMIRA [Suspect]
     Active Substance: ADALIMUMAB
     Indication: CROHN^S DISEASE
     Route: 058
     Dates: start: 20170609, end: 201708

REACTIONS (5)
  - Abscess intestinal [Recovering/Resolving]
  - Crohn^s disease [Recovering/Resolving]
  - Gastrointestinal obstruction [Not Recovered/Not Resolved]
  - Pain [Not Recovered/Not Resolved]
  - Gastrointestinal perforation [Not Recovered/Not Resolved]

NARRATIVE: CASE EVENT DATE: 2017
